FAERS Safety Report 7325378-0 (Version None)
Quarter: 2011Q1

REPORT INFORMATION
  Report Type: 
  Country: None (occurrence: None)
  Receive Date: 20110302
  Receipt Date: 20110202
  Transmission Date: 20110831
  Serious: No
  Sender: FDA-Public Use
  Company Number: US-B.I. PHARMACEUTICALS,INC./RIDGEFIELD-2011-BP-03235BP

PATIENT
  Sex: Female

DRUGS (8)
  1. LIPITOR [Concomitant]
     Indication: BLOOD CHOLESTEROL INCREASED
  2. PRADAXA [Suspect]
     Indication: ATRIAL FIBRILLATION
     Dosage: 300 MG
     Route: 048
     Dates: start: 20101101
  3. DIGOXIN [Concomitant]
     Indication: ATRIAL FIBRILLATION
  4. ALLOPURINOL [Concomitant]
     Indication: GOUT
  5. PRILOSEC [Concomitant]
     Indication: PROPHYLAXIS
  6. DIOVAN [Concomitant]
     Indication: ATRIAL FIBRILLATION
  7. MULTIVITAMIN [Concomitant]
     Indication: PROPHYLAXIS
  8. ASA [Concomitant]
     Indication: PROPHYLAXIS

REACTIONS (2)
  - MIGRAINE [None]
  - VISUAL IMPAIRMENT [None]
